FAERS Safety Report 7766457-3 (Version None)
Quarter: 2011Q3

REPORT INFORMATION
  Report Type: 
  Country: None (occurrence: None)
  Receive Date: 20110922
  Receipt Date: 20110914
  Transmission Date: 20111222
  Serious: No
  Sender: FDA-Public Use
  Company Number: US-BIOGENIDEC-2011BI035507

PATIENT
  Age: 41 Year
  Sex: Male

DRUGS (2)
  1. TOPAMAX [Concomitant]
     Indication: WEIGHT DECREASED
     Dates: start: 20110101
  2. TYSABRI [Suspect]
     Indication: MULTIPLE SCLEROSIS
     Route: 042
     Dates: start: 20110209

REACTIONS (2)
  - HYPOAESTHESIA [None]
  - ASTHENIA [None]
